FAERS Safety Report 5903924-9 (Version None)
Quarter: 2008Q3

REPORT INFORMATION
  Report Type: 
  Country: None (occurrence: None)
  Receive Date: 20080919
  Receipt Date: 20080602
  Transmission Date: 20090109
  Serious: No
  Sender: FDA-Public Use
  Company Number: US-WYE-H04354308

PATIENT
  Age: 44 Year
  Sex: Male
  Weight: 47.67 kg

DRUGS (12)
  1. PRISTIQ [Suspect]
     Indication: DEPRESSION
     Dosage: 50 MG 1X PER 1 DAY, ORAL
     Route: 048
     Dates: start: 20080501
  2. KEPPRA [Suspect]
     Indication: CONVULSION
     Dosage: 1500 MG 1X PER 1 DAY : 1000 MG 1X PER 1 DAY
     Dates: end: 20080501
  3. KEPPRA [Suspect]
     Indication: CONVULSION
     Dosage: 1500 MG 1X PER 1 DAY : 1000 MG 1X PER 1 DAY
     Dates: start: 20080501
  4. DILANTIN [Concomitant]
  5. STRATTERA [Concomitant]
  6. VISTARIL [Concomitant]
  7. DIAZEPAM [Concomitant]
  8. SEROQUEL [Concomitant]
  9. REMERON [Concomitant]
  10. ADVAIR DISKUS 100/50 [Concomitant]
  11. ALBUTEROL [Concomitant]
  12. ROZEREM [Concomitant]

REACTIONS (3)
  - ANORGASMIA [None]
  - ERECTILE DYSFUNCTION [None]
  - SOMNOLENCE [None]
